FAERS Safety Report 25489875 (Version 1)
Quarter: 2025Q2

REPORT INFORMATION
  Report Type: Spontaneous
  Country: BR (occurrence: BR)
  Receive Date: 20250627
  Receipt Date: 20250627
  Transmission Date: 20250716
  Serious: Yes (Death, Hospitalization, Other)
  Sender: ELI LILLY AND COMPANY
  Company Number: BR-ELI_LILLY_AND_COMPANY-BR202506022953

PATIENT
  Age: 27 Year
  Sex: Female

DRUGS (2)
  1. GEMCITABINE HYDROCHLORIDE [Suspect]
     Active Substance: GEMCITABINE HYDROCHLORIDE
     Indication: Cholangiocarcinoma
     Route: 065
  2. CISPLATIN [Concomitant]
     Active Substance: CISPLATIN
     Indication: Cholangiocarcinoma

REACTIONS (7)
  - Infection [Fatal]
  - Cardiac arrest [Fatal]
  - Cholangitis [Unknown]
  - Renal failure [Unknown]
  - Decreased immune responsiveness [Unknown]
  - Palpitations [Unknown]
  - Device related infection [Unknown]

NARRATIVE: CASE EVENT DATE: 20250623
